FAERS Safety Report 24223092 (Version 1)
Quarter: 2024Q3

REPORT INFORMATION
  Report Type: Spontaneous
  Country: US (occurrence: None)
  Receive Date: 20240816
  Receipt Date: 20240816
  Transmission Date: 20241017
  Serious: No
  Sender: Public
  Company Number: None

PATIENT
  Sex: Female

DRUGS (4)
  1. TADALAFIL [Suspect]
     Active Substance: TADALAFIL
     Indication: Pulmonary arterial hypertension
     Dosage: FREQUENCY : DAILY;?
     Route: 048
     Dates: start: 202310
  2. UPTRAVI (MNTH 2 TITR) [Concomitant]
  3. AMBRISENTAN [Concomitant]
  4. WINREVAIR SDV [Concomitant]

REACTIONS (2)
  - Headache [None]
  - Nausea [None]
